FAERS Safety Report 25051448 (Version 1)
Quarter: 2025Q1

REPORT INFORMATION
  Report Type: Spontaneous
  Country: US (occurrence: None)
  Receive Date: 20250307
  Receipt Date: 20250307
  Transmission Date: 20250408
  Serious: Yes (Life-Threatening, Hospitalization, Disabling)
  Sender: FDA-CTU
  Company Number: None

PATIENT
  Age: 78 Year
  Sex: Female

DRUGS (2)
  1. ELAHERE [Suspect]
     Active Substance: MIRVETUXIMAB SORAVTANSINE-GYNX
     Indication: Ovarian cancer
     Dates: start: 20250126, end: 20250212
  2. CARBOPLATIN [Suspect]
     Active Substance: CARBOPLATIN

REACTIONS (6)
  - Drug resistance [None]
  - Pulmonary toxicity [None]
  - Pneumonitis [None]
  - Diarrhoea [None]
  - Product complaint [None]
  - Mobility decreased [None]

NARRATIVE: CASE EVENT DATE: 20250212
